FAERS Safety Report 5708651-9 (Version None)
Quarter: 2008Q2

REPORT INFORMATION
  Report Type: 
  Country: None (occurrence: None)
  Receive Date: 20080417
  Receipt Date: 20080411
  Transmission Date: 20081010
  Serious: Yes (Other)
  Sender: FDA-Public Use
  Company Number: PHNU2008DE00985

PATIENT
  Age: 27 Year
  Sex: Male

DRUGS (1)
  1. IMMUNOSPORIN [Suspect]
     Indication: DERMATITIS ATOPIC
     Dosage: 150MG/DAY
     Route: 048
     Dates: start: 20071220, end: 20080114

REACTIONS (2)
  - HYPERTENSION [None]
  - HYPERTENSIVE CRISIS [None]
